FAERS Safety Report 9741458 (Version 2)
Quarter: 2013Q4

REPORT INFORMATION
  Report Type: Spontaneous
  Country: DE (occurrence: DE)
  Receive Date: 20131209
  Receipt Date: 20131216
  Transmission Date: 20140711
  Serious: Yes (Other)
  Sender: FDA-Public Use
  Company Number: PHHY2013DE143019

PATIENT
  Sex: 0

DRUGS (1)
  1. CLOZAPINE [Suspect]
     Dosage: UNK UKN, UNK

REACTIONS (1)
  - Liver abscess [Unknown]
